FAERS Safety Report 13470950 (Version 1)
Quarter: 2017Q2

REPORT INFORMATION
  Report Type: Spontaneous
  Country: US (occurrence: US)
  Receive Date: 20170424
  Receipt Date: 20170424
  Transmission Date: 20170830
  Serious: No
  Sender: FDA-Public Use
  Company Number: US-TEVA-671659USA

PATIENT
  Sex: Female
  Weight: 36.32 kg

DRUGS (2)
  1. LOSARTAN. [Suspect]
     Active Substance: LOSARTAN
     Indication: BLOOD PRESSURE ABNORMAL
  2. LOSARTAN. [Suspect]
     Active Substance: LOSARTAN

REACTIONS (2)
  - Nausea [Unknown]
  - Wrong technique in product usage process [Unknown]
